FAERS Safety Report 19779720 (Version 1)
Quarter: 2021Q3

REPORT INFORMATION
  Report Type: Spontaneous
  Country: US (occurrence: US)
  Receive Date: 20210902
  Receipt Date: 20210902
  Transmission Date: 20211014
  Serious: No
  Sender: FDA-Public Use
  Company Number: US-MYLANLABS-2021M1048836

PATIENT
  Sex: Female

DRUGS (1)
  1. ESTRADIOL VAGINAL CREAM USP [Suspect]
     Active Substance: ESTRADIOL
     Indication: URINARY INCONTINENCE
     Dosage: 1 GRAM, QD, 14 DAYS, AND THEN TWICE A WEEK AFTERWARD
     Route: 067

REACTIONS (2)
  - Product packaging quantity issue [Unknown]
  - Off label use [Not Recovered/Not Resolved]
